FAERS Safety Report 9114271 (Version 2)
Quarter: 2013Q1

REPORT INFORMATION
  Report Type: Spontaneous
  Country: IT (occurrence: IT)
  Receive Date: 20130208
  Receipt Date: 20130322
  Transmission Date: 20140127
  Serious: Yes (Hospitalization)
  Sender: FDA-Public Use
  Company Number: IT-SANOFI-AVENTIS-2013SA008843

PATIENT
  Age: 86 Year
  Sex: Female

DRUGS (7)
  1. ENOXAPARIN SODIUM [Suspect]
     Indication: PROPHYLAXIS
     Route: 058
     Dates: start: 20121130
  2. SINTROM [Suspect]
     Indication: PROPHYLAXIS
     Dosage: STRENGTH: 4 MG
     Route: 048
     Dates: start: 19910102, end: 20121130
  3. METFORMIN [Concomitant]
     Route: 048
  4. CALCIUM/VITAMIN D [Concomitant]
     Dosage: STRENGTH: 1000MG/880IU
     Route: 048
  5. LANOXIN [Concomitant]
     Dosage: STRENGTH: 0.125MG
     Route: 048
  6. LASIX [Concomitant]
     Dosage: STRENGTH: 25 MG
     Route: 048
  7. TRIATEC [Concomitant]
     Dosage: STRENGTH: 5 MG
     Route: 048

REACTIONS (3)
  - Gastrointestinal angiodysplasia haemorrhagic [Unknown]
  - Rectal haemorrhage [Unknown]
  - Anaemia [Unknown]
